FAERS Safety Report 6430798-2 (Version None)
Quarter: 2009Q4

REPORT INFORMATION
  Report Type: 
  Country: None (occurrence: None)
  Receive Date: 20091105
  Receipt Date: 20091105
  Transmission Date: 20100525
  Serious: Yes (Hospitalization)
  Sender: FDA-Public Use
  Company Number: None

PATIENT
  Age: 61 Year
  Sex: Female

DRUGS (2)
  1. DILAUDID [Suspect]
     Indication: HEADACHE
     Dosage: 1MG X3, IV
     Route: 042
     Dates: start: 20090708
  2. DEMEROL [Suspect]
     Indication: HEADACHE
     Dosage: 50MG X1, IV
     Route: 042
     Dates: start: 20090708

REACTIONS (1)
  - RESPIRATORY ARREST [None]
